FAERS Safety Report 9228863 (Version 1)
Quarter: 2013Q2

REPORT INFORMATION
  Report Type: Spontaneous
  Country: CO (occurrence: CO)
  Receive Date: 20130412
  Receipt Date: 20130412
  Transmission Date: 20140414
  Serious: Yes (Other)
  Sender: FDA-Public Use
  Company Number: CO-AMGEN-COLSP2013025232

PATIENT
  Age: 58 Year
  Sex: Female

DRUGS (1)
  1. ENBREL [Suspect]
     Indication: RHEUMATOID ARTHRITIS
     Dosage: 50 MG, WEEKLY
     Route: 058
     Dates: start: 201212

REACTIONS (6)
  - Blindness [Unknown]
  - Endophthalmitis [Unknown]
  - Rheumatoid arthritis [Unknown]
  - Dry eye [Unknown]
  - Cataract [Unknown]
  - Ophthalmic herpes simplex [Recovered/Resolved]
